FAERS Safety Report 15084347 (Version 1)
Quarter: 2018Q2

REPORT INFORMATION
  Report Type: Spontaneous
  Country: ZA (occurrence: ZA)
  Receive Date: 20180628
  Receipt Date: 20180628
  Transmission Date: 20180711
  Serious: Yes (Death)
  Sender: FDA-Public Use
  Company Number: ZA-PFIZER INC-2018261412

PATIENT
  Age: 96 Year
  Sex: Female

DRUGS (7)
  1. TRUVALIN [Suspect]
     Active Substance: QUETIAPINE FUMARATE
     Dosage: UNK
  2. TOPZOLE [Suspect]
     Active Substance: PANTOPRAZOLE SODIUM
     Dosage: UNK
  3. TRITACE [Suspect]
     Active Substance: RAMIPRIL
     Dosage: UNK
  4. PURICOS [Suspect]
     Active Substance: ALLOPURINOL
     Dosage: UNK
  5. EUTHYROX [Suspect]
     Active Substance: LEVOTHYROXINE SODIUM
     Dosage: UNK
  6. UNAT /01036501/ [Suspect]
     Active Substance: TORSEMIDE
     Dosage: UNK
  7. ASPAVOR [Suspect]
     Active Substance: ATORVASTATIN
     Dosage: UNK

REACTIONS (1)
  - Death [Fatal]
